FAERS Safety Report 17050150 (Version 1)
Quarter: 2019Q4

REPORT INFORMATION
  Report Type: Spontaneous
  Country: US (occurrence: US)
  Receive Date: 20191119
  Receipt Date: 20191119
  Transmission Date: 20200122
  Serious: No
  Sender: FDA-Public Use
  Company Number: US-TEVA-2019-US-1139128

PATIENT
  Sex: Female

DRUGS (2)
  1. SOLIFENACIN TEVA [Suspect]
     Active Substance: SOLIFENACIN SUCCINATE
     Indication: HYPERTONIC BLADDER
     Dosage: 1 DOSAGE FORMS DAILY;
     Route: 048
     Dates: start: 20190716, end: 20190729
  2. SOLIFENACIN TEVA [Suspect]
     Active Substance: SOLIFENACIN SUCCINATE
     Dosage: 5 MILLIGRAM DAILY;
     Route: 048
     Dates: start: 20190729

REACTIONS (1)
  - Drug ineffective [Unknown]
